FAERS Safety Report 17395472 (Version 4)
Quarter: 2020Q2

REPORT INFORMATION
  Report Type: Report from Study
  Country: KR (occurrence: KR)
  Receive Date: 20200210
  Receipt Date: 20200528
  Transmission Date: 20200713
  Serious: Yes (Hospitalization)
  Sender: FDA-Public Use
  Company Number: KR-ROCHE-2539027

PATIENT
  Age: 58 Year
  Sex: Female

DRUGS (22)
  1. PERTUZUMAB. [Suspect]
     Active Substance: PERTUZUMAB
     Route: 065
     Dates: start: 20200311
  2. DOCETAXEL. [Suspect]
     Active Substance: DOCETAXEL
     Indication: BREAST CANCER
     Route: 042
     Dates: start: 20191231
  3. EMEND [Concomitant]
     Active Substance: APREPITANT
     Route: 048
     Dates: start: 20191231
  4. CARBOPLATIN. [Concomitant]
     Active Substance: CARBOPLATIN
     Indication: BREAST CANCER
     Route: 042
     Dates: start: 20191231
  5. PERTUZUMAB. [Suspect]
     Active Substance: PERTUZUMAB
     Route: 065
     Dates: start: 20200129
  6. PERTUZUMAB. [Suspect]
     Active Substance: PERTUZUMAB
     Route: 065
     Dates: start: 20200422
  7. NEULASTA [Concomitant]
     Active Substance: PEGFILGRASTIM
     Route: 058
     Dates: start: 20200101
  8. DEXAMETHASONE. [Concomitant]
     Active Substance: DEXAMETHASONE
     Route: 042
     Dates: start: 20191231
  9. PERTUZUMAB. [Suspect]
     Active Substance: PERTUZUMAB
     Route: 065
     Dates: start: 20200401
  10. LIPIDIL [Concomitant]
     Active Substance: FENOFIBRATE
     Indication: HYPERTENSION
     Route: 048
  11. DEXAMETHASONE. [Concomitant]
     Active Substance: DEXAMETHASONE
     Route: 048
     Dates: start: 20200101
  12. GASTER [Concomitant]
     Active Substance: FAMOTIDINE
     Route: 042
     Dates: start: 20191231
  13. MECOOL [Concomitant]
     Route: 042
     Dates: start: 20191231
  14. SUSPEN ER [Concomitant]
     Route: 048
     Dates: start: 20191231
  15. PERTUZUMAB. [Suspect]
     Active Substance: PERTUZUMAB
     Indication: BREAST CANCER
     Route: 065
     Dates: start: 20191231
  16. PERTUZUMAB. [Suspect]
     Active Substance: PERTUZUMAB
     Route: 065
     Dates: start: 20200219
  17. EMEND [Concomitant]
     Active Substance: APREPITANT
     Route: 048
     Dates: start: 20200107
  18. TRASTUZUMAB. [Suspect]
     Active Substance: TRASTUZUMAB
     Indication: BREAST CANCER
     Route: 041
     Dates: start: 20191231
  19. DICODE [Concomitant]
     Indication: PAIN
     Route: 048
     Dates: start: 20200108
  20. CONCOR [Concomitant]
     Active Substance: BISOPROLOL FUMARATE
     Indication: HYPERTENSION
     Route: 048
     Dates: start: 2012
  21. CLOPIDOGREL [Concomitant]
     Active Substance: CLOPIDOGREL BISULFATE
     Indication: HYPERTENSION
     Route: 048
     Dates: start: 2012
  22. LANSTON [Concomitant]
     Active Substance: LANSOPRAZOLE
     Route: 048
     Dates: start: 20191231

REACTIONS (3)
  - Asthenia [Recovering/Resolving]
  - Gastroenteritis [Recovered/Resolved]
  - Urinary tract infection [Recovering/Resolving]

NARRATIVE: CASE EVENT DATE: 20200104
